FAERS Safety Report 4951439-7 (Version None)
Quarter: 2006Q1

REPORT INFORMATION
  Report Type: 
  Country: None (occurrence: None)
  Receive Date: 20060323
  Receipt Date: 20060314
  Transmission Date: 20060701
  Serious: Yes (Hospitalization)
  Sender: FDA-Public Use
  Company Number: PHEH2006US03515

PATIENT
  Age: 86 Year
  Sex: Male
  Weight: 94.331 kg

DRUGS (2)
  1. ZOMETA [Suspect]
     Indication: METASTASES TO BONE
     Dosage: 4 MG EVERY 3 WEEKS
     Dates: start: 20051212, end: 20060306
  2. MIACALCIN [Suspect]
     Indication: BONE PAIN
     Dates: start: 20060130

REACTIONS (3)
  - ARRHYTHMIA [None]
  - BONE PAIN [None]
  - HYPOCALCAEMIA [None]
